FAERS Safety Report 7138620-6 (Version None)
Quarter: 2010Q4

REPORT INFORMATION
  Report Type: 
  Country: None (occurrence: None)
  Receive Date: 20101122
  Receipt Date: 20101115
  Transmission Date: 20110411
  Serious: Yes (Death, Hospitalization)
  Sender: FDA-Public Use
  Company Number: 2010US004670

PATIENT
  Age: 65 Year
  Sex: Male

DRUGS (1)
  1. PROGRAF [Suspect]
     Indication: STEM CELL TRANSPLANT
     Dosage: 2.5 MG, BID, ORAL
     Route: 048
     Dates: start: 20100924

REACTIONS (1)
  - DIARRHOEA [None]
